FAERS Safety Report 6588110-4 (Version None)
Quarter: 2010Q1

REPORT INFORMATION
  Report Type: 
  Country: None (occurrence: None)
  Receive Date: 20100217
  Receipt Date: 20100217
  Transmission Date: 20100710
  Serious: Yes (Hospitalization)
  Sender: FDA-Public Use
  Company Number: None

PATIENT
  Sex: Female
  Weight: 40.9 kg

DRUGS (2)
  1. TOPOTECAN [Suspect]
     Dosage: 3.06 MG
     Dates: end: 20100203
  2. TAXOL [Suspect]
     Dosage: 238 MG
     Dates: end: 20100201

REACTIONS (4)
  - COLONIC OBSTRUCTION [None]
  - HYDRONEPHROSIS [None]
  - HYDROURETER [None]
  - UTERINE FISTULA [None]
